FAERS Safety Report 13959375 (Version 1)
Quarter: 2017Q3

REPORT INFORMATION
  Report Type: Spontaneous
  Country: US (occurrence: US)
  Receive Date: 20170911
  Receipt Date: 20170911
  Transmission Date: 20171128
  Serious: No
  Sender: FDA-Public Use
  Company Number: US-LEXICON PHARMACEUTICALS, INC-17-1606-00778

PATIENT
  Sex: Male

DRUGS (8)
  1. SANDOSTATIN LAR DEPOT [Concomitant]
     Active Substance: OCTREOTIDE ACETATE
  2. ASPIRIN [Concomitant]
  3. VITAMIN A [Concomitant]
     Active Substance: VITAMIN A
  4. VITAMIN D3 [Concomitant]
  5. SYNTHROID [Concomitant]
  6. MILK THISTLE EXTRACT [Concomitant]
  7. TELOTRISTAT ETHYL [Suspect]
     Active Substance: TELOTRISTAT ETHYL
     Indication: CARCINOID SYNDROME
     Route: 048
     Dates: start: 20170309
  8. DANDELION ROOT [Concomitant]

REACTIONS (3)
  - Haemoglobin decreased [Not Recovered/Not Resolved]
  - Platelet count decreased [Not Recovered/Not Resolved]
  - Red blood cell count decreased [Not Recovered/Not Resolved]

NARRATIVE: CASE EVENT DATE: 2017
